FAERS Safety Report 4302493-7 (Version None)
Quarter: 2004Q1

REPORT INFORMATION
  Report Type: 
  Country: None (occurrence: None)
  Receive Date: 20040220
  Receipt Date: 20040205
  Transmission Date: 20041129
  Serious: Yes (Other)
  Sender: FDA-Public Use
  Company Number: 2004-BP-00732YA

PATIENT
  Age: 56 Year
  Sex: Male

DRUGS (2)
  1. HARNAL (TAMSULOSIN) (NR) (TAMSULOSIN HYDROCHLORIDE) [Suspect]
     Dosage: 120 MG (NR) PO
     Route: 048
     Dates: start: 20031002, end: 20031016
  2. EVIPROSTAT (EVIPROSTAT) (NR) [Concomitant]

REACTIONS (2)
  - DIZZINESS [None]
  - LOSS OF CONSCIOUSNESS [None]
